FAERS Safety Report 6220832-7 (Version None)
Quarter: 2009Q2

REPORT INFORMATION
  Report Type: 
  Country: None (occurrence: None)
  Receive Date: 20090605
  Receipt Date: 20090525
  Transmission Date: 20091009
  Serious: Yes (Other)
  Sender: FDA-Public Use
  Company Number: GB-WYE-H09555609

PATIENT
  Age: 85 Year
  Sex: Male

DRUGS (2)
  1. AMIODARONE HCL [Suspect]
     Indication: ATRIAL FIBRILLATION
     Dosage: 200 MG 1X PER 1 DAY ORAL
     Route: 048
  2. ASPIRIN [Concomitant]

REACTIONS (4)
  - BACTERIAL CULTURE POSITIVE [None]
  - NEUROPATHIC ARTHROPATHY [None]
  - NEUROPATHY PERIPHERAL [None]
  - SKIN ULCER [None]
